FAERS Safety Report 9849544 (Version 1)
Quarter: 2014Q1

REPORT INFORMATION
  Report Type: Spontaneous
  Country: US (occurrence: None)
  Receive Date: 20140127
  Receipt Date: 20140127
  Transmission Date: 20141002
  Serious: No
  Sender: FDA-Public Use
  Company Number: None

PATIENT
  Age: 22 None
  Sex: 0
  Weight: 98.88 kg

DRUGS (2)
  1. RISPERIDONE ODT [Suspect]
     Indication: SCHIZOAFFECTIVE DISORDER
     Dosage: 2MG 4 MG DAILY AT BEDTIME BY MOUTH
     Route: 048
     Dates: start: 20131219
  2. INVEGA SUSTENNA [Suspect]
     Dosage: 234 MG EVERY 4 WEEKS IM
     Route: 030
     Dates: start: 20131219

REACTIONS (3)
  - Oculogyric crisis [None]
  - Eye movement disorder [None]
  - Hyperhidrosis [None]
